FAERS Safety Report 8502451-2 (Version None)
Quarter: 2012Q3

REPORT INFORMATION
  Report Type: 
  Country: None (occurrence: None)
  Receive Date: 20120711
  Receipt Date: 20120627
  Transmission Date: 20120928
  Serious: Yes (Death, Life-Threatening, Hospitalization, Other)
  Sender: FDA-Public Use
  Company Number: JP-ASTELLAS-2012US005598

PATIENT
  Sex: Female
  Weight: 48 kg

DRUGS (4)
  1. FERROMIA                           /00023520/ [Concomitant]
     Indication: IRON DEFICIENCY ANAEMIA
     Dosage: 50 MG, QID
     Route: 048
     Dates: start: 20120426, end: 20120528
  2. TARCEVA [Suspect]
     Indication: LUNG NEOPLASM MALIGNANT
     Dosage: 150 MG, UID/QD
     Route: 048
     Dates: start: 20120214, end: 20120521
  3. CELEBREX [Concomitant]
     Indication: CANCER PAIN
     Dosage: 2 DF, BID
     Route: 048
     Dates: start: 20120309, end: 20120528
  4. LANSOPRAZOLE [Concomitant]
     Indication: PROPHYLAXIS AGAINST GASTROINTESTINAL ULCER
     Dosage: 30 MG, UID/QD
     Route: 048
     Dates: start: 20120406, end: 20120528

REACTIONS (6)
  - LEFT VENTRICULAR HYPERTROPHY [None]
  - ELECTROCARDIOGRAM ST SEGMENT ABNORMAL [None]
  - INTERSTITIAL LUNG DISEASE [None]
  - ENTEROCOCCAL SEPSIS [None]
  - RESPIRATORY FAILURE [None]
  - LYMPHANGIOSIS CARCINOMATOSA [None]
